FAERS Safety Report 8473651-5 (Version None)
Quarter: 2012Q2

REPORT INFORMATION
  Report Type: 
  Country: None (occurrence: None)
  Receive Date: 20120628
  Receipt Date: 20110803
  Transmission Date: 20120825
  Serious: Yes (Other)
  Sender: FDA-Public Use
  Company Number: US-MYLANLABS-2011S1016144

PATIENT
  Age: 51 Year
  Sex: Female

DRUGS (3)
  1. ZYPREXA [Concomitant]
  2. COGENTIN [Concomitant]
  3. CLOZAPINE [Suspect]
     Dates: end: 20110601

REACTIONS (1)
  - LEUKOPENIA [None]
